FAERS Safety Report 7693484-7 (Version None)
Quarter: 2011Q3

REPORT INFORMATION
  Report Type: 
  Country: None (occurrence: None)
  Receive Date: 20110819
  Receipt Date: 20110819
  Transmission Date: 20111222
  Serious: Yes (Hospitalization)
  Sender: FDA-Public Use
  Company Number: None

PATIENT
  Age: 45 Year
  Sex: Male

DRUGS (1)
  1. ZYFLO [Suspect]
     Indication: ASTHMA
     Dosage: 600 MG
     Route: 048
     Dates: start: 20110430, end: 20110505

REACTIONS (4)
  - ANXIETY [None]
  - AGGRESSION [None]
  - AGITATION [None]
  - HALLUCINATION [None]
